FAERS Safety Report 14651142 (Version 2)
Quarter: 2018Q3

REPORT INFORMATION
  Report Type: Report from Study
  Country: CA (occurrence: CA)
  Receive Date: 20180316
  Receipt Date: 20180918
  Transmission Date: 20181010
  Serious: Yes (Hospitalization, Other)
  Sender: FDA-Public Use
  Company Number: CA-BRISTOL-MYERS SQUIBB COMPANY-BMS-2018-021673

PATIENT
  Sex: Female

DRUGS (1)
  1. ABATACEPT [Suspect]
     Active Substance: ABATACEPT
     Indication: RHEUMATOID ARTHRITIS
     Dosage: 125 MG, QWK
     Route: 065

REACTIONS (5)
  - Dehydration [Unknown]
  - Spinal compression fracture [Unknown]
  - Urinary tract infection [Unknown]
  - Fall [Unknown]
  - Hypotension [Unknown]
